FAERS Safety Report 16320119 (Version 1)
Quarter: 2019Q2

REPORT INFORMATION
  Report Type: Spontaneous
  Country: US (occurrence: US)
  Receive Date: 20190410
  Receipt Date: 20190410
  Transmission Date: 20190711
  Serious: Yes (Hospitalization, Other)
  Sender: FDA-Public Use
  Company Number: None

PATIENT
  Age: 60 Year
  Sex: Female

DRUGS (1)
  1. LETAIRIS [Suspect]
     Active Substance: AMBRISENTAN
     Indication: PULMONARY ARTERIAL HYPERTENSION
     Route: 048
     Dates: start: 20121210

REACTIONS (5)
  - Palpitations [None]
  - Vomiting [None]
  - Diarrhoea [None]
  - Atrial flutter [None]
  - Nausea [None]

NARRATIVE: CASE EVENT DATE: 20190405
